FAERS Safety Report 7484904-1 (Version None)
Quarter: 2011Q2

REPORT INFORMATION
  Report Type: 
  Country: None (occurrence: None)
  Receive Date: 20110517
  Receipt Date: 20110511
  Transmission Date: 20111010
  Serious: Yes (Death)
  Sender: FDA-Public Use
  Company Number: A0927549A

PATIENT
  Age: 73 Year
  Sex: Female

DRUGS (1)
  1. REQUIP [Suspect]
     Dosage: 1MG UNKNOWN
     Route: 065
     Dates: start: 20070510, end: 20110106

REACTIONS (1)
  - DEATH [None]
